FAERS Safety Report 5014293-3 (Version None)
Quarter: 2006Q2

REPORT INFORMATION
  Report Type: 
  Country: None (occurrence: None)
  Receive Date: 20060414
  Receipt Date: 20051227
  Transmission Date: 20061013
  Serious: No
  Sender: FDA-Public Use
  Company Number: 2005SP004528

PATIENT
  Age: 38 Year
  Sex: Female

DRUGS (3)
  1. LUNESTA [Suspect]
     Indication: INSOMNIA
     Dosage: 1 MG;HS;ORAL
     Route: 048
     Dates: start: 20050907
  2. ANTIDEPRESSION MEDICATION [Concomitant]
  3. CLONAZEPAM [Concomitant]

REACTIONS (1)
  - DRUG EFFECT DECREASED [None]
